FAERS Safety Report 9858360 (Version 1)
Quarter: 2014Q1

REPORT INFORMATION
  Report Type: Spontaneous
  Country: US (occurrence: None)
  Receive Date: 20140130
  Receipt Date: 20140130
  Transmission Date: 20141002
  Serious: Yes (Other)
  Sender: FDA-Public Use
  Company Number: None

PATIENT
  Age: 44 Year
  Sex: Male
  Weight: 92.99 kg

DRUGS (1)
  1. NIACIN [Suspect]
     Indication: LOW DENSITY LIPOPROTEIN
     Dosage: AT BEDTIME, TAKEN UNDER THE TONGUE
     Dates: start: 20140110, end: 20140116

REACTIONS (5)
  - Middle insomnia [None]
  - Burning sensation [None]
  - Loss of consciousness [None]
  - Fall [None]
  - Head injury [None]
